FAERS Safety Report 17787159 (Version 3)
Quarter: 2021Q2

REPORT INFORMATION
  Report Type: Spontaneous
  Country: AR (occurrence: AR)
  Receive Date: 20200514
  Receipt Date: 20210519
  Transmission Date: 20210716
  Serious: Yes (Hospitalization, Other)
  Sender: FDA-Public Use
  Company Number: NVSC2020AR128176

PATIENT
  Age: 4 Year
  Sex: Female

DRUGS (4)
  1. TEGRETOL [Suspect]
     Active Substance: CARBAMAZEPINE
     Dosage: 1 AND HALF (STOPED IN APRIL)
     Route: 065
  2. TEGRETOL [Suspect]
     Active Substance: CARBAMAZEPINE
     Dosage: UNK
     Route: 065
  3. TEGRETOL [Suspect]
     Active Substance: CARBAMAZEPINE
     Dosage: HALF OF 200 Q12H
     Route: 065
     Dates: start: 2018
  4. TEGRETOL [Suspect]
     Active Substance: CARBAMAZEPINE
     Indication: STURGE-WEBER SYNDROME
     Dosage: UNK
     Route: 065
     Dates: start: 201410, end: 2018

REACTIONS (10)
  - Wound [Recovered/Resolved]
  - Gait inability [Recovered/Resolved]
  - Fall [Recovered/Resolved]
  - Seizure [Recovered/Resolved]
  - Fatigue [Recovered/Resolved]
  - Irritability [Unknown]
  - Wrong technique in product usage process [Unknown]
  - Somnolence [Unknown]
  - Drug ineffective [Unknown]
  - Product use in unapproved indication [Unknown]

NARRATIVE: CASE EVENT DATE: 2018
